FAERS Safety Report 14957903 (Version 4)
Quarter: 2019Q1

REPORT INFORMATION
  Report Type: Report from Study
  Country: US (occurrence: US)
  Receive Date: 20180531
  Receipt Date: 20190219
  Transmission Date: 20190417
  Serious: No
  Sender: FDA-Public Use
  Company Number: PHEH2018US021007

PATIENT
  Sex: Male
  Weight: 68 kg

DRUGS (2)
  1. ILARIS [Suspect]
     Active Substance: CANAKINUMAB
     Dosage: 180 MG, UNK (EVERY 42 DAYS)
     Route: 058
  2. ILARIS [Suspect]
     Active Substance: CANAKINUMAB
     Indication: STILL^S DISEASE
     Dosage: 140 MG, (FOR EVERY 42 DAYS)
     Route: 058

REACTIONS (5)
  - Arthralgia [Unknown]
  - Cough [Unknown]
  - Arthropod bite [Unknown]
  - Pain in extremity [Unknown]
  - Tonsillitis [Recovered/Resolved]
